FAERS Safety Report 18735839 (Version 14)
Quarter: 2023Q1

REPORT INFORMATION
  Report Type: Spontaneous
  Country: PL (occurrence: PL)
  Receive Date: 20210113
  Receipt Date: 20230206
  Transmission Date: 20230418
  Serious: Yes (Hospitalization, Other)
  Sender: FDA-Public Use
  Company Number: NVSC2021PL005308

PATIENT
  Age: 68 Year
  Sex: Male

DRUGS (24)
  1. QUETIAPINE [Interacting]
     Active Substance: QUETIAPINE
     Indication: Insomnia
     Dosage: 25 MG, QD (INITIAL DOSE) AT NIGHT (FILM-COATED TABLET)
     Route: 065
  2. QUETIAPINE [Interacting]
     Active Substance: QUETIAPINE
     Dosage: 50 MG, QD (INCREASED) AT NIGHT, 50 MG AT BEDTIME) (FILM-COATED TABLET)
     Route: 065
  3. ATORVASTATIN CALCIUM [Interacting]
     Active Substance: ATORVASTATIN CALCIUM
     Indication: Atrial fibrillation
     Dosage: 40 MG, QD (AFTER A STROKE)
     Route: 048
  4. ATORVASTATIN CALCIUM [Interacting]
     Active Substance: ATORVASTATIN CALCIUM
     Indication: Cerebrovascular accident
  5. CIPROFLOXACIN HYDROCHLORIDE [Interacting]
     Active Substance: CIPROFLOXACIN HYDROCHLORIDE
     Indication: Penile infection
     Dosage: 1000 MG, QD (500 MILLIGRAM, 2X/DAY (BID)
     Route: 048
  6. CIPROFLOXACIN HYDROCHLORIDE [Interacting]
     Active Substance: CIPROFLOXACIN HYDROCHLORIDE
     Indication: Antibiotic prophylaxis
  7. CIPROFLOXACIN HYDROCHLORIDE [Interacting]
     Active Substance: CIPROFLOXACIN HYDROCHLORIDE
     Indication: Infectious disease carrier
  8. CIPROFLOXACIN HYDROCHLORIDE [Interacting]
     Active Substance: CIPROFLOXACIN HYDROCHLORIDE
     Indication: Pruritus genital
  9. XARELTO [Interacting]
     Active Substance: RIVAROXABAN
     Indication: Atrial fibrillation
     Dosage: 20 MG (AFTER A STROKE)
     Route: 048
  10. XARELTO [Interacting]
     Active Substance: RIVAROXABAN
     Indication: Cerebrovascular accident
  11. XARELTO [Interacting]
     Active Substance: RIVAROXABAN
     Indication: Cardiovascular disorder
  12. FUROSEMIDE [Interacting]
     Active Substance: FUROSEMIDE
     Indication: Cardiovascular disorder
     Dosage: 40 MG
     Route: 048
  13. FUROSEMIDE [Interacting]
     Active Substance: FUROSEMIDE
     Indication: Atrial fibrillation
  14. FUROSEMIDE [Interacting]
     Active Substance: FUROSEMIDE
     Indication: Cerebrovascular accident
  15. DIAZEPAM [Interacting]
     Active Substance: DIAZEPAM
     Indication: Insomnia
     Dosage: 10 MG, QD (10 MG HALF HOUR BEFORE BEDTIME)
     Route: 065
  16. CETIRIZINE [Interacting]
     Active Substance: CETIRIZINE HYDROCHLORIDE
     Indication: Pruritus genital
     Dosage: 10 MG, QD
     Route: 065
  17. FLUCONAZOLE [Interacting]
     Active Substance: FLUCONAZOLE
     Indication: Penile infection
     Dosage: 100 MG, Q12H IN COMBINATION WITH CIPROFLOXACIN 2X500 MG ORALLY
     Route: 048
  18. FLUCONAZOLE [Interacting]
     Active Substance: FLUCONAZOLE
     Indication: Antibiotic prophylaxis
  19. FLUCONAZOLE [Interacting]
     Active Substance: FLUCONAZOLE
     Indication: Infectious disease carrier
  20. FLUCONAZOLE [Interacting]
     Active Substance: FLUCONAZOLE
     Indication: Pruritus genital
  21. TRAZODONE HYDROCHLORIDE [Interacting]
     Active Substance: TRAZODONE HYDROCHLORIDE
     Indication: Somnolence
     Dosage: 50 MG, QD (50 MG THREE HOURS BEFORE BEDTIME)
     Route: 065
  22. TRAZODONE HYDROCHLORIDE [Interacting]
     Active Substance: TRAZODONE HYDROCHLORIDE
     Indication: Insomnia
  23. METOPROLOL [Concomitant]
     Active Substance: METOPROLOL
     Indication: Atrial fibrillation
     Dosage: 100 MG, QD
     Route: 048
  24. METOPROLOL [Concomitant]
     Active Substance: METOPROLOL
     Indication: Cerebrovascular accident

REACTIONS (8)
  - Penile haemorrhage [Recovered/Resolved]
  - Pruritus genital [Recovered/Resolved]
  - Somnolence [Recovered/Resolved]
  - Fall [Recovered/Resolved]
  - Drug level increased [Unknown]
  - Drug interaction [Recovered/Resolved]
  - Contraindicated product administered [Unknown]
  - Product use in unapproved indication [Unknown]
